FAERS Safety Report 13873600 (Version 3)
Quarter: 2017Q3

REPORT INFORMATION
  Report Type: Report from Study
  Country: US (occurrence: US)
  Receive Date: 20170816
  Receipt Date: 20170826
  Transmission Date: 20171127
  Serious: Yes (Hospitalization, Disabling, Other)
  Sender: FDA-Public Use
  Company Number: US-AMGEN-USASL2017120999

PATIENT
  Age: 55 Year
  Sex: Female
  Weight: 85.71 kg

DRUGS (2)
  1. ENBREL [Suspect]
     Active Substance: ETANERCEPT
     Dosage: 50 MG, QWK
     Route: 065
     Dates: start: 2017
  2. ENBREL [Suspect]
     Active Substance: ETANERCEPT
     Indication: RHEUMATOID ARTHRITIS
     Dosage: 50 MG, QWK
     Route: 065
     Dates: end: 2017

REACTIONS (1)
  - Rheumatoid arthritis [Recovering/Resolving]

NARRATIVE: CASE EVENT DATE: 2017
